FAERS Safety Report 24246565 (Version 1)
Quarter: 2024Q3

REPORT INFORMATION
  Report Type: Spontaneous
  Country: US (occurrence: US)
  Receive Date: 20240825
  Receipt Date: 20240825
  Transmission Date: 20241017
  Serious: Yes (Other)
  Sender: BAUSCH AND LOMB
  Company Number: US-BAUSCHBL-2024BNL031779

PATIENT
  Age: 56 Year
  Sex: Female

DRUGS (3)
  1. LOTEPREDNOL ETABONATE [Suspect]
     Active Substance: LOTEPREDNOL ETABONATE
     Indication: Ocular pemphigoid
     Route: 061
  2. TACROLIMUS [Suspect]
     Active Substance: TACROLIMUS
     Indication: Ocular pemphigoid
     Route: 061
  3. METHOTREXATE [Concomitant]
     Active Substance: METHOTREXATE
     Indication: Ocular pemphigoid
     Dosage: 4 YEARS
     Route: 065

REACTIONS (1)
  - Glaucoma [Unknown]
